FAERS Safety Report 13886949 (Version 1)
Quarter: 2017Q3

REPORT INFORMATION
  Report Type: Spontaneous
  Country: US (occurrence: US)
  Receive Date: 20170821
  Receipt Date: 20170821
  Transmission Date: 20171127
  Serious: No
  Sender: FDA-Public Use
  Company Number: US-PFIZER INC-2017358833

PATIENT
  Age: 65 Year
  Sex: Female
  Weight: 86.18 kg

DRUGS (2)
  1. LISINOPRIL. [Concomitant]
     Active Substance: LISINOPRIL
     Indication: BLOOD PRESSURE ABNORMAL
     Dosage: UNK (NOT A VERY HIGH DOSE)
  2. XELJANZ [Suspect]
     Active Substance: TOFACITINIB CITRATE
     Indication: RHEUMATOID ARTHRITIS
     Dosage: 5 MG, 2X/DAY
     Route: 048
     Dates: start: 201704, end: 20170619

REACTIONS (8)
  - Dyspnoea [Recovering/Resolving]
  - Gait disturbance [Recovered/Resolved]
  - Cardiac disorder [Unknown]
  - Muscle spasms [Recovered/Resolved]
  - Drug effect incomplete [Unknown]
  - Chest pain [Unknown]
  - Pain [Unknown]
  - Lung disorder [Unknown]

NARRATIVE: CASE EVENT DATE: 2017
